FAERS Safety Report 6160047-4 (Version None)
Quarter: 2009Q2

REPORT INFORMATION
  Report Type: 
  Country: None (occurrence: None)
  Receive Date: 20090416
  Receipt Date: 20090403
  Transmission Date: 20091009
  Serious: Yes (Disabling)
  Sender: FDA-Public Use
  Company Number: APP200900180

PATIENT
  Sex: Female

DRUGS (2)
  1. MARCAINE WITH EPINEPHRINE (MARCAINE WITH EPINEPHRINE /00879801/) [Suspect]
     Indication: MUSCULOSKELETAL PAIN
     Dosage: 270/300 CC CONTINUOUS VIA PUMP, INTRA-ARTICULAR
     Route: 014
     Dates: start: 20020408
  2. ZIMMER SORENSON PAIN PUMP, INTRA-ARTICULAR [Suspect]
     Indication: MUSCULOSKELETAL PAIN
     Dates: start: 20020408

REACTIONS (5)
  - CHONDROLYSIS [None]
  - CHONDROPATHY [None]
  - MUSCULOSKELETAL DISCOMFORT [None]
  - MUSCULOSKELETAL PAIN [None]
  - OSTEOARTHRITIS [None]
